FAERS Safety Report 8060365-9 (Version None)
Quarter: 2012Q1

REPORT INFORMATION
  Report Type: 
  Country: None (occurrence: None)
  Receive Date: 20120119
  Receipt Date: 20120119
  Transmission Date: 20120608
  Serious: Yes (Hospitalization)
  Sender: FDA-Public Use
  Company Number: None

PATIENT
  Age: 70 Year
  Sex: Female
  Weight: 42.7 kg

DRUGS (4)
  1. MACRODANTIN [Concomitant]
  2. METOPROLOL [Concomitant]
  3. COUMADIN [Suspect]
     Indication: ATRIAL FIBRILLATION
     Dosage: 3MG DAILY SQ CHRONIC
     Route: 058
  4. METRONIDAZOLE [Concomitant]

REACTIONS (2)
  - IRON DEFICIENCY ANAEMIA [None]
  - INTERNATIONAL NORMALISED RATIO INCREASED [None]
